FAERS Safety Report 8839798 (Version 1)
Quarter: 2012Q4

REPORT INFORMATION
  Report Type: 
  Country: US (occurrence: US)
  Receive Date: 20121015
  Receipt Date: 20121015
  Transmission Date: 20130627
  Serious: No
  Sender: FDA-Public Use
  Company Number: US-BRISTOL-MYERS SQUIBB COMPANY-16219248

PATIENT
  Age: 17 Year
  Sex: Female

DRUGS (2)
  1. KENALOG-40 INJ [Suspect]
     Indication: HYPERSENSITIVITY
     Dosage: Kenalog-40 injection on 17Aug2011 :inj in right gutt
     Dates: start: 20110817
  2. LORATADINE [Concomitant]
     Dates: start: 20110817

REACTIONS (2)
  - Impaired healing [Not Recovered/Not Resolved]
  - Injection site atrophy [Unknown]
